FAERS Safety Report 18427855 (Version 1)
Quarter: 2020Q4

REPORT INFORMATION
  Report Type: Spontaneous
  Country: US (occurrence: US)
  Receive Date: 20201026
  Receipt Date: 20201026
  Transmission Date: 20210114
  Serious: Yes (Death, Hospitalization, Other)
  Sender: FDA-Public Use
  Company Number: US-009507513-2010USA008581

PATIENT
  Age: 71 Year
  Sex: Male

DRUGS (3)
  1. METHOTREXATE. [Concomitant]
     Active Substance: METHOTREXATE
     Indication: NON-SMALL CELL LUNG CANCER STAGE IV
  2. CARBOPLATIN (+) PEMETREXED DISODIUM [Concomitant]
     Indication: NON-SMALL CELL LUNG CANCER STAGE IV
  3. KEYTRUDA [Suspect]
     Active Substance: PEMBROLIZUMAB
     Indication: NON-SMALL CELL LUNG CANCER STAGE IV

REACTIONS (1)
  - Tumour hyperprogression [Fatal]
